FAERS Safety Report 10113261 (Version 3)
Quarter: 2014Q2

REPORT INFORMATION
  Report Type: Report from Study
  Country: FR (occurrence: FR)
  Receive Date: 20140425
  Receipt Date: 20140512
  Transmission Date: 20141212
  Serious: Yes (Hospitalization)
  Sender: FDA-Public Use
  Company Number: FR-BAYER-2014-055134

PATIENT
  Sex: Female
  Weight: 53 kg

DRUGS (8)
  1. REGORAFENIB [Suspect]
     Indication: HEPATOCELLULAR CARCINOMA
     Dosage: 160 MG, QD
     Route: 048
     Dates: start: 20140307, end: 20140328
  2. IMODIUM [Concomitant]
     Indication: PROPHYLAXIS AGAINST DIARRHOEA
     Dosage: UNK UNK, PRN
     Route: 048
     Dates: start: 20140306
  3. KARDEGIC [Concomitant]
     Indication: ATHEROSCLEROSIS PROPHYLAXIS
     Dosage: 75 MGR PER DAY
     Route: 048
  4. ENALAPRIL [Concomitant]
     Indication: HYPERTENSION
     Dosage: 10 MGR PER DAY
     Route: 048
     Dates: start: 2009
  5. COAPROVEL [Concomitant]
     Indication: HYPERTENSION
     Dosage: 300 MGR PER DAY
     Route: 048
  6. CELECTOL [Concomitant]
     Indication: HYPERTENSION
     Dosage: 200 MGR PER DAY
     Route: 048
  7. STAGID [Concomitant]
     Indication: DYSLIPIDAEMIA
     Dosage: 700 MG PER DAY
     Route: 048
  8. CERAT DE GALIEN [Concomitant]
     Indication: DRUG TOXICITY PROPHYLAXIS
     Dosage: 1 APPLICATION X2 PER DAY
     Route: 062
     Dates: start: 20130516

REACTIONS (7)
  - General physical health deterioration [Recovered/Resolved]
  - Hypoalbuminaemia [Not Recovered/Not Resolved]
  - Pyrexia [Recovered/Resolved]
  - Fatigue [Not Recovered/Not Resolved]
  - Abdominal pain [None]
  - Nausea [None]
  - Oedema peripheral [Not Recovered/Not Resolved]
